FAERS Safety Report 5240508-2 (Version None)
Quarter: 2007Q1

REPORT INFORMATION
  Report Type: 
  Country: None (occurrence: None)
  Receive Date: 20070219
  Receipt Date: 20070209
  Transmission Date: 20070707
  Serious: Yes (Hospitalization)
  Sender: FDA-Public Use
  Company Number: IT-GLAXOSMITHKLINE-B0458692A

PATIENT
  Age: 96 Year
  Sex: Female

DRUGS (3)
  1. LANOXIN [Suspect]
     Indication: ATRIAL FIBRILLATION
     Route: 042
     Dates: start: 20061225, end: 20061225
  2. HYDROCORTISONE [Concomitant]
  3. NIFEDIPINE [Concomitant]
     Route: 048

REACTIONS (2)
  - BRADYARRHYTHMIA [None]
  - SYNCOPE [None]
